FAERS Safety Report 13092290 (Version 1)
Quarter: 2017Q1

REPORT INFORMATION
  Report Type: Spontaneous
  Country: US (occurrence: US)
  Receive Date: 20170106
  Receipt Date: 20170106
  Transmission Date: 20170428
  Serious: Yes (Hospitalization, Other)
  Sender: FDA-Public Use
  Company Number: US-B. BRAUN MEDICAL INC.-1061600

PATIENT
  Age: 57 Year
  Sex: Male
  Weight: 103 kg

DRUGS (2)
  1. OXYGEN. [Concomitant]
     Active Substance: OXYGEN
     Route: 045
  2. SODIUM CHLORIDE. [Suspect]
     Active Substance: SODIUM CHLORIDE
     Indication: BLOOD PRESSURE DECREASED
     Route: 042

REACTIONS (3)
  - Chest pain [Recovering/Resolving]
  - Air embolism [Recovering/Resolving]
  - Dyspnoea [Recovering/Resolving]
